FAERS Safety Report 10085872 (Version 4)
Quarter: 2014Q2

REPORT INFORMATION
  Report Type: Spontaneous
  Country: DE (occurrence: None)
  Receive Date: 20140416
  Receipt Date: 20140429
  Transmission Date: 20141212
  Serious: Yes (Death, Other)
  Sender: FDA-Public Use
  Company Number: AUR-APL-2014-04632

PATIENT
  Age: 59 Year
  Sex: Female

DRUGS (1)
  1. ALENDRONIC ACID [Suspect]
     Indication: OSTEOPOROSIS
     Dosage: 70 MG, 1 WK, ORAL
     Route: 048

REACTIONS (18)
  - Osteonecrosis of jaw [None]
  - Multi-organ failure [None]
  - Bacterial sepsis [None]
  - Abscess jaw [None]
  - Embolism venous [None]
  - Pneumonia [None]
  - Septic shock [None]
  - Inflammation [None]
  - Klebsiella test positive [None]
  - Pseudomonas test positive [None]
  - Enterococcus test positive [None]
  - Candida test positive [None]
  - Lactobacillus infection [None]
  - Renal failure [None]
  - Hepatic failure [None]
  - Haemodynamic instability [None]
  - Fistula [None]
  - Septic embolus [None]
